FAERS Safety Report 6943271-X (Version None)
Quarter: 2010Q3

REPORT INFORMATION
  Report Type: 
  Country: None (occurrence: None)
  Receive Date: 20100826
  Receipt Date: 20100813
  Transmission Date: 20110219
  Serious: Yes (Hospitalization)
  Sender: FDA-Public Use
  Company Number: BE-ABBOTT-10P-013-0664037-00

PATIENT
  Sex: Male

DRUGS (10)
  1. HUMIRA [Suspect]
     Indication: PSORIATIC ARTHROPATHY
     Dates: start: 20090805
  2. HUMIRA [Suspect]
     Dates: start: 20100701
  3. BIOFENAC [Concomitant]
     Indication: ARTHRITIS
  4. ARAVA [Concomitant]
     Indication: ARTHRITIS
     Dosage: FORM STRENGTH: 20 MG
     Dates: end: 20091118
  5. MEDROL [Concomitant]
     Indication: ARTHRITIS
     Dosage: FORM STRENGTH: 4 MG
  6. ZALDIAR [Concomitant]
     Indication: ARTHRITIS
     Dosage: FORM STRENGTH: 40 MG
     Dates: end: 20091118
  7. GLOCOPHAGE [Concomitant]
     Indication: PRODUCT USED FOR UNKNOWN INDICATION
     Dosage: FORM STRENGTH: 500 MG
  8. PANTOMED [Concomitant]
     Indication: PRODUCT USED FOR UNKNOWN INDICATION
  9. ASAFLOW [Concomitant]
     Indication: PRODUCT USED FOR UNKNOWN INDICATION
  10. MARCUMAR [Concomitant]
     Indication: PRODUCT USED FOR UNKNOWN INDICATION

REACTIONS (2)
  - ARTHRITIS [None]
  - PULMONARY EMBOLISM [None]
